FAERS Safety Report 12629084 (Version 1)
Quarter: 2016Q3

REPORT INFORMATION
  Report Type: Report from Study
  Country: CN (occurrence: CN)
  Receive Date: 20160808
  Receipt Date: 20160808
  Transmission Date: 20161109
  Serious: Yes (Hospitalization)
  Sender: FDA-Public Use
  Company Number: CN-ROCHE-1721353

PATIENT
  Sex: Male
  Weight: 64 kg

DRUGS (1)
  1. AVASTIN [Suspect]
     Active Substance: BEVACIZUMAB
     Indication: RECTAL CANCER
     Route: 041
     Dates: start: 20151025, end: 20160628

REACTIONS (4)
  - Intestinal obstruction [Recovering/Resolving]
  - Gastrointestinal disorder [Unknown]
  - Abdominal discomfort [Unknown]
  - Weight decreased [Unknown]
